FAERS Safety Report 23461482 (Version 1)
Quarter: 2024Q1

REPORT INFORMATION
  Report Type: Spontaneous
  Country: US (occurrence: US)
  Receive Date: 20240131
  Receipt Date: 20240131
  Transmission Date: 20240410
  Serious: Yes (Hospitalization)
  Sender: FDA-Public Use
  Company Number: US-PFIZER INC-PV202200123084

PATIENT
  Age: 86 Year
  Sex: Female

DRUGS (2)
  1. IBRANCE [Suspect]
     Active Substance: PALBOCICLIB
     Indication: Breast cancer metastatic
     Dosage: 125 MG, 1 TABLET DAILY FOR 21 DOSES (DAYS 1 THROUGH 21, FOLLOWED BY 7 DAYS OFF TREATMENT, WITH FOOD)
     Route: 048
     Dates: start: 20221114, end: 20221221
  2. IBRANCE [Suspect]
     Active Substance: PALBOCICLIB
     Dosage: 125 MG, DAILY FOR 21 DOSES. TAKE ON DAYS 1 THROUGH 21 (FOLLOWED BY 7 DAYS OFF TREATMENT) WITH FOOD
     Route: 048

REACTIONS (3)
  - Hypotension [Unknown]
  - Product prescribing error [Unknown]
  - Product dispensing error [Unknown]
